FAERS Safety Report 6658182-7 (Version None)
Quarter: 2010Q1

REPORT INFORMATION
  Report Type: 
  Country: None (occurrence: None)
  Receive Date: 20100330
  Receipt Date: 20100317
  Transmission Date: 20100710
  Serious: Yes (Other)
  Sender: FDA-Public Use
  Company Number: B0643414A

PATIENT
  Sex: Female

DRUGS (4)
  1. MELPHALAN HYDROCHLORIDE [Suspect]
     Indication: MULTIPLE MYELOMA
  2. VELCADE [Suspect]
     Indication: MULTIPLE MYELOMA
     Dosage: 1.3MGM2 CYCLIC
     Route: 042
     Dates: start: 20070105
  3. DEXAMETHASONE [Suspect]
     Indication: MULTIPLE MYELOMA
     Dosage: 40MGM2 CYCLIC
     Route: 048
     Dates: start: 20070105
  4. DOXIL [Suspect]
     Indication: MULTIPLE MYELOMA
     Dosage: 30MGM2 CYCLIC
     Route: 042
     Dates: start: 20070108

REACTIONS (1)
  - SEPSIS [None]
